FAERS Safety Report 11896260 (Version 1)
Quarter: 2016Q1

REPORT INFORMATION
  Report Type: Spontaneous
  Country: US (occurrence: US)
  Receive Date: 20160107
  Receipt Date: 20160107
  Transmission Date: 20160526
  Serious: Yes (Death, Hospitalization)
  Sender: FDA-Public Use
  Company Number: US-ROCHE-1517791

PATIENT
  Age: 59 Year
  Sex: Female

DRUGS (2)
  1. RITUXAN [Suspect]
     Active Substance: RITUXIMAB
     Indication: HEPATITIS C
  2. RITUXAN [Suspect]
     Active Substance: RITUXIMAB
     Indication: CUTANEOUS VASCULITIS
     Dosage: GETS 1000 MG X2 INFUSION
     Route: 042

REACTIONS (2)
  - Respiratory failure [Unknown]
  - Pneumocystis jirovecii pneumonia [Fatal]

NARRATIVE: CASE EVENT DATE: 201406
